FAERS Safety Report 8068255-2 (Version None)
Quarter: 2012Q1

REPORT INFORMATION
  Report Type: 
  Country: None (occurrence: None)
  Receive Date: 20120124
  Receipt Date: 20111005
  Transmission Date: 20120608
  Serious: No
  Sender: FDA-Public Use
  Company Number: US-AMGEN-USASP2011051483

PATIENT
  Age: 68 Year
  Sex: Female

DRUGS (14)
  1. BUSIRONE [Concomitant]
     Dosage: UNK
  2. GABAPENTIN [Concomitant]
     Dosage: UNK
  3. PATANOL [Concomitant]
     Dosage: UNK
  4. BETAMETHASONE VALERATE [Concomitant]
     Dosage: UNK
  5. DIAZEPAM [Concomitant]
     Dosage: UNK
  6. DOVONEX [Concomitant]
     Dosage: UNK
  7. LOSARTAN POTASSIUM [Concomitant]
     Dosage: UNK
  8. HYDROCHLOROTHIAZIDE [Concomitant]
     Dosage: UNK
  9. BENADRYL [Suspect]
     Dosage: UNK UNK, TID
  10. CYCLOBENZAPRINE [Concomitant]
     Dosage: UNK
  11. PROLIA [Suspect]
     Indication: OSTEOPOROSIS POSTMENOPAUSAL
     Dosage: UNK
  12. CLOBETASOL PROPIONATE [Concomitant]
     Dosage: UNK
  13. CELEBREX [Concomitant]
     Dosage: UNK
  14. VISTARIL [Concomitant]
     Dosage: UNK

REACTIONS (2)
  - BLISTER [None]
  - ECZEMA [None]
